FAERS Safety Report 22110680 (Version 2)
Quarter: 2023Q2

REPORT INFORMATION
  Report Type: Report from Study
  Country: US (occurrence: US)
  Receive Date: 20230317
  Receipt Date: 20230519
  Transmission Date: 20230722
  Serious: Yes (Death, Hospitalization)
  Sender: FDA-Public Use
  Company Number: US-VANDA PHARMACEUTICALS, INC-2023TASUS006590

PATIENT
  Age: 54 Year
  Sex: Female
  Weight: 81.633 kg

DRUGS (1)
  1. HETLIOZ [Suspect]
     Active Substance: TASIMELTEON
     Indication: Non-24-hour sleep-wake disorder
     Dosage: 20 MILLIGRAM, QHS
     Route: 048

REACTIONS (3)
  - Death [Fatal]
  - Mental disorder [Unknown]
  - Headache [Unknown]

NARRATIVE: CASE EVENT DATE: 20230320
